FAERS Safety Report 13151977 (Version 1)
Quarter: 2017Q1

REPORT INFORMATION
  Report Type: Report from Study
  Country: US (occurrence: US)
  Receive Date: 20170125
  Receipt Date: 20170125
  Transmission Date: 20170428
  Serious: Yes (Hospitalization, Other)
  Sender: FDA-Public Use
  Company Number: US-BAXALTA-2017BLT000557

PATIENT
  Age: 59 Year
  Sex: Female

DRUGS (1)
  1. HYQVIA [Suspect]
     Active Substance: HUMAN IMMUNOGLOBULIN G\HYALURONIDASE RECOMBINANT HUMAN
     Indication: SELECTIVE IGG SUBCLASS DEFICIENCY
     Dosage: 20 G, 1X A MONTH
     Route: 058
     Dates: start: 201601

REACTIONS (5)
  - Small intestinal obstruction [Recovered/Resolved]
  - Body temperature abnormal [Recovered/Resolved]
  - Kidney infection [Recovered/Resolved]
  - Renal failure [Recovered/Resolved]
  - White blood cell disorder [Recovered/Resolved]

NARRATIVE: CASE EVENT DATE: 201608
